FAERS Safety Report 5306967-1 (Version None)
Quarter: 2007Q2

REPORT INFORMATION
  Report Type: 
  Country: None (occurrence: None)
  Receive Date: 20070425
  Receipt Date: 20070419
  Transmission Date: 20071010
  Serious: Yes (Life-Threatening, Hospitalization)
  Sender: FDA-Public Use
  Company Number: GB-BRACCO-BRO-011662

PATIENT
  Age: 54 Year

DRUGS (4)
  1. NIOPAM [Suspect]
     Route: 042
     Dates: start: 20070221, end: 20070221
  2. ATROVENT [Concomitant]
     Route: 050
  3. METHOTREXATE [Concomitant]
     Route: 048
  4. SYMBICORT [Concomitant]
     Route: 050

REACTIONS (1)
  - DERMATITIS EXFOLIATIVE [None]
